FAERS Safety Report 10263269 (Version 2)
Quarter: 2015Q3

REPORT INFORMATION
  Report Type: Spontaneous
  Country: US (occurrence: US)
  Receive Date: 20140626
  Receipt Date: 20150817
  Transmission Date: 20151125
  Serious: No
  Sender: FDA-Public Use
  Company Number: US-GILEAD-2014-0106563

PATIENT
  Age: 49 Year
  Sex: Male

DRUGS (18)
  1. APIDRA SOLOSTAR [Concomitant]
     Active Substance: INSULIN GLULISINE
  2. FLUTICASONE [Concomitant]
     Active Substance: FLUTICASONE\FLUTICASONE PROPIONATE
  3. VITAMIN D [Concomitant]
     Active Substance: CHOLECALCIFEROL
  4. SIMVASTATIN. [Concomitant]
     Active Substance: SIMVASTATIN
  5. LETAIRIS [Suspect]
     Active Substance: AMBRISENTAN
     Indication: PULMONARY HYPERTENSION
     Dosage: 10 MG, QD
     Route: 065
     Dates: start: 20140619
  6. COENZYME Q10 [Concomitant]
     Active Substance: UBIDECARENONE
  7. FISH OIL [Concomitant]
     Active Substance: FISH OIL
  8. ESTER-C                            /00008001/ [Concomitant]
  9. POTASSIUM CHLORIDE. [Concomitant]
     Active Substance: POTASSIUM CHLORIDE
  10. LANTUS [Concomitant]
     Active Substance: INSULIN GLARGINE
  11. ADCIRCA [Concomitant]
     Active Substance: TADALAFIL
  12. MAGNESIUM [Concomitant]
     Active Substance: MAGNESIUM
  13. L-CARNITINE                        /00878601/ [Concomitant]
     Active Substance: LEVOCARNITINE
  14. LEVOTHYROXINE. [Concomitant]
     Active Substance: LEVOTHYROXINE
  15. CENTRUM                            /02267801/ [Concomitant]
  16. VITAMIN B12 [Concomitant]
     Active Substance: CYANOCOBALAMIN
  17. FUROSEMIDE. [Concomitant]
     Active Substance: FUROSEMIDE
  18. D-RIBOSE [Concomitant]
     Active Substance: DIETARY SUPPLEMENT

REACTIONS (2)
  - Headache [Not Recovered/Not Resolved]
  - Nasal congestion [Recovered/Resolved]

NARRATIVE: CASE EVENT DATE: 20140619
